FAERS Safety Report 23825377 (Version 2)
Quarter: 2024Q3

REPORT INFORMATION
  Report Type: Spontaneous
  Country: IT (occurrence: IT)
  Receive Date: 20240507
  Receipt Date: 20240703
  Transmission Date: 20241017
  Serious: Yes (Other)
  Sender: TEVA
  Company Number: None

PATIENT
  Age: 81 Year
  Sex: Female

DRUGS (12)
  1. LEVOFLOXACIN [Suspect]
     Active Substance: LEVOFLOXACIN
     Indication: Cough
     Dosage: TIME INTERVAL: TOTAL: THERAPY PRESCRIBED FOR 5 DAYS.
     Route: 048
     Dates: start: 20231220, end: 20231225
  2. BARNIDIPINE HYDROCHLORIDE [Concomitant]
     Active Substance: BARNIDIPINE HYDROCHLORIDE
     Indication: Hypertension
     Dosage: START DATE OF THERAPY, OFFICIAL ATTRIBUTION
     Route: 048
     Dates: start: 20230101
  3. VENLAFAXINE [Concomitant]
     Active Substance: VENLAFAXINE HYDROCHLORIDE
     Indication: Depression
     Dosage: START DATE OF THERAPY, OFFICIAL ATTRIBUTION
     Route: 048
     Dates: start: 20230101
  4. FILGRASTIM [Concomitant]
     Active Substance: FILGRASTIM
     Indication: Neutropenia
     Dosage: START DATE OF THERAPY, OFFICIAL ATTRIBUTION
     Route: 048
     Dates: start: 20230101
  5. ZOLPIDEM [Concomitant]
     Active Substance: ZOLPIDEM TARTRATE
     Indication: Insomnia
     Route: 048
     Dates: start: 20230101
  6. TRANEXAMIC ACID [Concomitant]
     Active Substance: TRANEXAMIC ACID
     Indication: Fibrinolysis
     Route: 048
  7. CHOLECALCIFEROL [Concomitant]
     Active Substance: CHOLECALCIFEROL
     Indication: Vitamin D deficiency
     Route: 048
     Dates: start: 20230101
  8. LEVOTHYROXINE SODIUM [Concomitant]
     Active Substance: LEVOTHYROXINE SODIUM
     Indication: Hypothyroidism
     Dosage: START DATE OF THERAPY OFFICIAL ATTRIBUTION
     Route: 048
     Dates: start: 20230101
  9. POTASSIUM CHLORIDE [Concomitant]
     Active Substance: POTASSIUM CHLORIDE
     Indication: Prophylaxis
     Route: 048
     Dates: start: 20230101
  10. TORSEMIDE [Concomitant]
     Active Substance: TORSEMIDE
     Indication: Oedema
     Route: 048
     Dates: start: 20230101
  11. ERYTHROPOIETIN [Concomitant]
     Active Substance: ERYTHROPOIETIN
     Indication: Anaemia
     Route: 048
     Dates: start: 20230101
  12. MYCOSTATIN [Concomitant]
     Active Substance: NYSTATIN
     Indication: Candida infection
     Route: 048
     Dates: start: 20230101

REACTIONS (2)
  - Seizure [Recovering/Resolving]
  - Transient ischaemic attack [Unknown]

NARRATIVE: CASE EVENT DATE: 20231225
